FAERS Safety Report 19591659 (Version 5)
Quarter: 2021Q3

REPORT INFORMATION
  Report Type: Spontaneous
  Country: US (occurrence: US)
  Receive Date: 20210721
  Receipt Date: 20210916
  Transmission Date: 20211014
  Serious: Yes (Other)
  Sender: FDA-Public Use
  Company Number: US-JNJFOC-20210734073

PATIENT
  Sex: Male

DRUGS (4)
  1. UPTRAVI [Suspect]
     Active Substance: SELEXIPAG
     Indication: PRODUCT USED FOR UNKNOWN INDICATION
     Route: 065
  2. AMBRISENTAN [Suspect]
     Active Substance: AMBRISENTAN
     Indication: PULMONARY HYPERTENSION
     Route: 048
     Dates: start: 20210120
  3. PREDNISONE. [Suspect]
     Active Substance: PREDNISONE
     Indication: LOWER RESPIRATORY TRACT INFECTION
     Route: 065
  4. METOPROLOL. [Concomitant]
     Active Substance: METOPROLOL

REACTIONS (22)
  - Chest pain [Unknown]
  - Lower respiratory tract infection [Not Recovered/Not Resolved]
  - Chest discomfort [Unknown]
  - Anxiety [Unknown]
  - Decreased appetite [Unknown]
  - Poor quality sleep [Not Recovered/Not Resolved]
  - Arthralgia [Not Recovered/Not Resolved]
  - Tachycardia [Unknown]
  - Diarrhoea [Unknown]
  - Laryngitis [Recovering/Resolving]
  - Dyspnoea [Unknown]
  - Dizziness [Unknown]
  - Breath sounds abnormal [Unknown]
  - Nausea [Unknown]
  - Joint swelling [Not Recovered/Not Resolved]
  - Abdominal pain upper [Unknown]
  - Inflammation [Not Recovered/Not Resolved]
  - Fatigue [Unknown]
  - Pruritus [Unknown]
  - Weight increased [Unknown]
  - Heart rate increased [Unknown]
  - Increased appetite [Unknown]
